FAERS Safety Report 4286468-2 (Version None)
Quarter: 2004Q1

REPORT INFORMATION
  Report Type: 
  Country: None (occurrence: None)
  Receive Date: 20040205
  Receipt Date: 20040205
  Transmission Date: 20041129
  Serious: Yes (Other)
  Sender: FDA-Public Use
  Company Number: None

PATIENT
  Age: 39 Year
  Sex: Female
  Weight: 48.6 kg

DRUGS (7)
  1. ZICAM -OTC ^ZIAC^ NASAL SPRAY [Suspect]
     Indication: NASOPHARYNGITIS
     Dosage: NASAL SPRAY PRN
  2. VIRAMUNE [Suspect]
     Indication: HIV INFECTION
     Dosage: 200 MG PO BID
     Route: 048
     Dates: end: 20030201
  3. COMBIVIR [Concomitant]
  4. LOPINAVIR/RITONAVIR [Concomitant]
  5. TRAZODONE HCL [Concomitant]
  6. LO/OVRAL [Concomitant]
  7. TENOFOVIR [Concomitant]

REACTIONS (3)
  - PERIORBITAL OEDEMA [None]
  - PRURITUS [None]
  - URTICARIA [None]
